FAERS Safety Report 4410001-5 (Version None)
Quarter: 2004Q3

REPORT INFORMATION
  Report Type: 
  Country: None (occurrence: None)
  Receive Date: 20040728
  Receipt Date: 20040719
  Transmission Date: 20050211
  Serious: Yes (Hospitalization)
  Sender: FDA-Public Use
  Company Number: GR-BRISTOL-MYERS SQUIBB COMPANY-12644605

PATIENT
  Age: 70 Year
  Sex: Female

DRUGS (9)
  1. METHOTREXATE [Suspect]
     Indication: RHEUMATOID ARTHRITIS
  2. LEVOTHYROXINE SODIUM [Concomitant]
  3. NIFEDIPINE [Concomitant]
  4. TICLOPIDINE HCL [Concomitant]
  5. FERROUS SULFATE TAB [Concomitant]
  6. FOLIC ACID [Concomitant]
  7. METHYLPREDNISOLONE [Concomitant]
  8. CALCIUM [Concomitant]
  9. ALPHACALCIDOL [Concomitant]

REACTIONS (7)
  - CEREBRAL ATROPHY [None]
  - CEREBRAL ISCHAEMIA [None]
  - DIARRHOEA [None]
  - PANCYTOPENIA [None]
  - PARKINSON'S DISEASE [None]
  - RENAL FAILURE ACUTE [None]
  - STOMATITIS [None]
